FAERS Safety Report 7053150-8 (Version None)
Quarter: 2010Q4

REPORT INFORMATION
  Report Type: 
  Country: None (occurrence: None)
  Receive Date: 20101020
  Receipt Date: 20100921
  Transmission Date: 20110411
  Serious: No
  Sender: FDA-Public Use
  Company Number: US-BAYER-200943917NA

PATIENT
  Age: 43 Year
  Sex: Female

DRUGS (1)
  1. MIRENA [Suspect]
     Indication: CONTRACEPTION
     Route: 015
     Dates: start: 20050601, end: 20091218

REACTIONS (3)
  - ABDOMINAL PAIN LOWER [None]
  - ASTHENIA [None]
  - VAGINAL HAEMORRHAGE [None]
